FAERS Safety Report 8336022-8 (Version None)
Quarter: 2012Q2

REPORT INFORMATION
  Report Type: 
  Country: None (occurrence: None)
  Receive Date: 20120501
  Receipt Date: 20120501
  Transmission Date: 20120825
  Serious: Yes (Hospitalization)
  Sender: FDA-Public Use
  Company Number: None

PATIENT
  Age: 49 Year
  Sex: Male
  Weight: 83.3 kg

DRUGS (10)
  1. COREG [Concomitant]
  2. PRAVACHOL [Concomitant]
  3. PLAVIX [Suspect]
     Indication: PERIPHERAL VASCULAR DISORDER
     Dosage: 75MG DAILY PO CHRONIC
     Route: 048
  4. PERCOCET [Concomitant]
  5. LISINOPRIL [Concomitant]
  6. RENA-VITE [Concomitant]
  7. WARFARIN SODIUM [Suspect]
     Indication: PERIPHERAL VASCULAR DISORDER
     Dosage: 5MG DAILY PO CHRONIC
     Route: 048
  8. INSULIN [Concomitant]
  9. HUMULIN R [Concomitant]
  10. LANTHAM CARBONATE [Concomitant]

REACTIONS (4)
  - GASTROINTESTINAL HAEMORRHAGE [None]
  - INTERNATIONAL NORMALISED RATIO INCREASED [None]
  - OESOPHAGEAL ULCER [None]
  - HYPERTENSION [None]
